FAERS Safety Report 25892518 (Version 1)
Quarter: 2025Q4

REPORT INFORMATION
  Report Type: Report from Study
  Country: US (occurrence: US)
  Receive Date: 20251007
  Receipt Date: 20251007
  Transmission Date: 20260118
  Serious: Yes (Hospitalization)
  Sender: EISAI
  Company Number: US-Eisai-EC-2025-195878

PATIENT
  Age: 59 Year
  Sex: Female

DRUGS (1)
  1. LENVIMA [Suspect]
     Active Substance: LENVATINIB
     Indication: Endometrial cancer
     Route: 048
     Dates: end: 2025

REACTIONS (14)
  - Headache [Unknown]
  - Arthralgia [Unknown]
  - Stomatitis [Unknown]
  - Vomiting [Unknown]
  - Fatigue [Not Recovered/Not Resolved]
  - Pain [Unknown]
  - Peripheral swelling [Unknown]
  - Myalgia [Unknown]
  - Dry mouth [Unknown]
  - Hot flush [Unknown]
  - Abdominal pain upper [Not Recovered/Not Resolved]
  - Decreased appetite [Unknown]
  - Dyspepsia [Unknown]
  - Blood glucose increased [Unknown]

NARRATIVE: CASE EVENT DATE: 20250101
